FAERS Safety Report 17420030 (Version 1)
Quarter: 2020Q1

REPORT INFORMATION
  Report Type: Spontaneous
  Country: US (occurrence: US)
  Receive Date: 20200214
  Receipt Date: 20200214
  Transmission Date: 20200409
  Serious: No
  Sender: FDA-Public Use
  Company Number: US-PFIZER INC-2020064570

PATIENT
  Age: 48 Year
  Sex: Female
  Weight: 49.9 kg

DRUGS (1)
  1. PREGABALIN. [Suspect]
     Active Substance: PREGABALIN
     Indication: NERVE INJURY
     Dosage: 150 MG, 3X/DAY
     Route: 048
     Dates: start: 20190909, end: 201911

REACTIONS (2)
  - Diarrhoea [Recovered/Resolved]
  - Hypokalaemic syndrome [Unknown]
